FAERS Safety Report 8539572-4 (Version None)
Quarter: 2012Q3

REPORT INFORMATION
  Report Type: 
  Country: None (occurrence: None)
  Receive Date: 20120726
  Receipt Date: 20120719
  Transmission Date: 20120928
  Serious: Yes (Hospitalization)
  Sender: FDA-Public Use
  Company Number: CH-ELI_LILLY_AND_COMPANY-CH201207001975

PATIENT
  Sex: Female
  Weight: 66 kg

DRUGS (6)
  1. EFFIENT [Suspect]
     Dosage: 60 MG, UNK
     Route: 048
     Dates: start: 20111007, end: 20111007
  2. EFFIENT [Suspect]
     Dosage: 10 MG, QD
     Route: 048
     Dates: start: 20111008
  3. ASPIRIN [Concomitant]
     Dosage: 300-500 LOADING DOSE
  4. EFFIENT [Suspect]
     Dosage: 60 MG, UNK
     Route: 048
     Dates: start: 20110313, end: 20110313
  5. ASPIRIN [Concomitant]
     Dosage: 100 MG, QD
  6. EFFIENT [Suspect]
     Dosage: 10 MG, QD
     Route: 048
     Dates: start: 20110314, end: 20110909

REACTIONS (3)
  - ANGINA PECTORIS [None]
  - CORONARY ARTERY RESTENOSIS [None]
  - VERTIGO [None]
